FAERS Safety Report 12621789 (Version 2)
Quarter: 2016Q3

REPORT INFORMATION
  Report Type: Report from Study
  Country: US (occurrence: US)
  Receive Date: 20160804
  Receipt Date: 20160927
  Transmission Date: 20161109
  Serious: Yes (Hospitalization, Other)
  Sender: FDA-Public Use
  Company Number: US-NAPPMUNDI-USA-2016-0132598

PATIENT
  Age: 60 Year
  Sex: Female

DRUGS (3)
  1. OXYCONTIN [Suspect]
     Active Substance: OXYCODONE HYDROCHLORIDE
     Dosage: UNK
     Route: 048
     Dates: start: 201403
  2. OXYCONTIN [Suspect]
     Active Substance: OXYCODONE HYDROCHLORIDE
     Dosage: 10 MG, TID
     Route: 048
     Dates: start: 20160701
  3. OXYCONTIN [Suspect]
     Active Substance: OXYCODONE HYDROCHLORIDE
     Indication: NEURITIS
     Dosage: 30 MG, BID
     Route: 048
     Dates: start: 20160701

REACTIONS (9)
  - Blood potassium abnormal [Unknown]
  - Heart injury [Unknown]
  - Blood magnesium abnormal [Unknown]
  - Vomiting [Unknown]
  - Diarrhoea [Unknown]
  - Extra dose administered [Unknown]
  - Cystitis [Unknown]
  - Atrial fibrillation [Unknown]
  - Dehydration [Unknown]

NARRATIVE: CASE EVENT DATE: 201609
